FAERS Safety Report 25906744 (Version 1)
Quarter: 2025Q4

REPORT INFORMATION
  Report Type: Spontaneous
  Country: CN (occurrence: CN)
  Receive Date: 20251010
  Receipt Date: 20251010
  Transmission Date: 20260117
  Serious: Yes (Other)
  Sender: PFIZER
  Company Number: CN-PFIZER INC-PV202500119972

PATIENT
  Age: 22 Year
  Sex: Female
  Weight: 42 kg

DRUGS (1)
  1. FLUCONAZOLE [Suspect]
     Active Substance: FLUCONAZOLE
     Indication: Vulvovaginal candidiasis
     Dosage: 150 MG, SINGLE
     Route: 048
     Dates: start: 20250927, end: 20250927

REACTIONS (4)
  - Hypoaesthesia oral [Recovering/Resolving]
  - Pain in extremity [Recovering/Resolving]
  - Oral mucosal blistering [Recovering/Resolving]
  - Mouth ulceration [Recovering/Resolving]

NARRATIVE: CASE EVENT DATE: 20250927
